FAERS Safety Report 13390569 (Version 2)
Quarter: 2017Q2

REPORT INFORMATION
  Report Type: Spontaneous
  Country: JP (occurrence: JP)
  Receive Date: 20170331
  Receipt Date: 20170522
  Transmission Date: 20170830
  Serious: Yes (Hospitalization)
  Sender: FDA-Public Use
  Company Number: JP-ELI_LILLY_AND_COMPANY-JP201703009901

PATIENT
  Age: 55 Year
  Sex: Female
  Weight: 39 kg

DRUGS (18)
  1. OXINORM                            /00045603/ [Concomitant]
     Active Substance: OXYCODONE HYDROCHLORIDE
     Route: 048
  2. RINDERON V [Concomitant]
     Active Substance: BETAMETHASONE VALERATE
     Route: 048
  3. CYRAMZA [Suspect]
     Active Substance: RAMUCIRUMAB
     Dosage: 310 MG, OTHER
     Route: 042
     Dates: start: 20161020, end: 20161020
  4. NOVAMIN                            /00013304/ [Concomitant]
     Active Substance: PROCHLORPERAZINE MALEATE
     Route: 048
  5. GRANISETRON [Concomitant]
     Active Substance: GRANISETRON
     Route: 042
  6. DOCETAXEL. [Suspect]
     Active Substance: DOCETAXEL
     Dosage: 60 MG, OTHER
     Route: 042
     Dates: start: 20161020, end: 20161020
  7. POLARAMINE [Concomitant]
     Active Substance: DEXCHLORPHENIRAMINE MALEATE
  8. CYRAMZA [Suspect]
     Active Substance: RAMUCIRUMAB
     Indication: LUNG ADENOCARCINOMA STAGE IV
     Dosage: 380 MG, OTHER
     Route: 042
     Dates: start: 20160923, end: 20160923
  9. FENTOS [Concomitant]
     Active Substance: FENTANYL
     Route: 062
  10. LUNESTA [Concomitant]
     Active Substance: ESZOPICLONE
     Route: 048
  11. REBAMIPIDE [Concomitant]
     Active Substance: REBAMIPIDE
     Route: 048
  12. DOCETAXEL. [Suspect]
     Active Substance: DOCETAXEL
     Indication: LUNG ADENOCARCINOMA STAGE IV
     Dosage: 75 MG, OTHER
     Route: 042
     Dates: start: 20160923, end: 20160923
  13. MAGMITT [Concomitant]
     Active Substance: MAGNESIUM OXIDE
     Route: 048
  14. LOXOPROFEN [Concomitant]
     Active Substance: LOXOPROFEN
     Route: 048
  15. DEXART [Concomitant]
     Active Substance: DEXAMETHASONE SODIUM PHOSPHATE
  16. SENNOSIDE                          /00571901/ [Concomitant]
     Active Substance: SENNOSIDES A AND B
     Route: 048
  17. MIYA-BM [Concomitant]
     Active Substance: CLOSTRIDIUM BUTYRICUM SPORES STRAIN M-55
     Route: 048
  18. RIZE                               /00624801/ [Concomitant]
     Active Substance: CLOTIAZEPAM
     Route: 048

REACTIONS (1)
  - Interstitial lung disease [Recovering/Resolving]

NARRATIVE: CASE EVENT DATE: 20161031
